FAERS Safety Report 20657166 (Version 2)
Quarter: 2022Q2

REPORT INFORMATION
  Report Type: Other
  Country: US (occurrence: None)
  Receive Date: 20220331
  Receipt Date: 20220406
  Transmission Date: 20220721
  Serious: Yes (Other)
  Sender: FDA-Public Use
  Company Number: US-ROCHE-3063229

PATIENT
  Sex: Male
  Weight: 98.518 kg

DRUGS (13)
  1. OCREVUS [Suspect]
     Active Substance: OCRELIZUMAB
     Indication: Relapsing-remitting multiple sclerosis
     Dosage: CURRENTLY ON OCREVUS SINCE FEB/2019.?(TWO - 300 MG) -600 MG RETURN IN EVERY 6 MONTHS
     Route: 042
     Dates: start: 201902
  2. TYLENOL [Concomitant]
     Active Substance: ACETAMINOPHEN
  3. ACETAMINOPHEN [Concomitant]
     Active Substance: ACETAMINOPHEN
  4. BACLOFEN [Concomitant]
     Active Substance: BACLOFEN
  5. CETIRIZINE HYDROCHLORIDE [Concomitant]
     Active Substance: CETIRIZINE HYDROCHLORIDE
  6. CHOLECALCIFEROL [Concomitant]
     Active Substance: CHOLECALCIFEROL
  7. CYANOCOBALAMIN [Concomitant]
     Active Substance: CYANOCOBALAMIN
  8. PREDNISONE [Concomitant]
     Active Substance: PREDNISONE
  9. MONTELUKAST [Concomitant]
     Active Substance: MONTELUKAST SODIUM
  10. TIZANIDINE [Concomitant]
     Active Substance: TIZANIDINE
  11. TADALAFIL [Concomitant]
     Active Substance: TADALAFIL
  12. PANTOPRAZOLE [Concomitant]
     Active Substance: PANTOPRAZOLE
  13. ESCITALOPRAM [Concomitant]
     Active Substance: ESCITALOPRAM OXALATE

REACTIONS (10)
  - JC polyomavirus test positive [Unknown]
  - Cognitive disorder [Unknown]
  - Fatigue [Unknown]
  - Muscle spasms [Unknown]
  - Depression [Unknown]
  - Anxiety [Unknown]
  - Insomnia [Unknown]
  - Hepatitis B antibody abnormal [Unknown]
  - Immunoglobulins abnormal [Unknown]
  - Multiple sclerosis [Unknown]
